FAERS Safety Report 10044677 (Version 1)
Quarter: 2014Q1

REPORT INFORMATION
  Report Type: Spontaneous
  Country: US (occurrence: US)
  Receive Date: 20140328
  Receipt Date: 20140328
  Transmission Date: 20141002
  Serious: Yes (Death, Other)
  Sender: FDA-Public Use
  Company Number: US-TEVA-471532USA

PATIENT
  Age: 40 Year
  Sex: Female

DRUGS (1)
  1. LANSOPRAZOLE [Suspect]
     Route: 065

REACTIONS (4)
  - Drug reaction with eosinophilia and systemic symptoms [Fatal]
  - Multi-organ failure [Fatal]
  - Renal failure acute [Not Recovered/Not Resolved]
  - Acute respiratory failure [Not Recovered/Not Resolved]
